FAERS Safety Report 26116650 (Version 1)
Quarter: 2025Q4

REPORT INFORMATION
  Report Type: Spontaneous
  Country: US (occurrence: None)
  Receive Date: 20251203
  Receipt Date: 20251203
  Transmission Date: 20260117
  Serious: Yes (Hospitalization)
  Sender: FDA-CTU
  Company Number: None

PATIENT
  Age: 59 Year
  Sex: Female
  Weight: 58.6 kg

DRUGS (3)
  1. CYTARABINE [Suspect]
     Active Substance: CYTARABINE
     Dates: end: 20251003
  2. METHOTREXATE [Suspect]
     Active Substance: METHOTREXATE
     Dates: start: 20250930, end: 20250930
  3. PONATINIB [Suspect]
     Active Substance: PONATINIB
     Dates: end: 20251020

REACTIONS (4)
  - Pyrexia [None]
  - Pain in extremity [None]
  - Chest pain [None]
  - Painful respiration [None]

NARRATIVE: CASE EVENT DATE: 20251021
